FAERS Safety Report 8392281-7 (Version None)
Quarter: 2012Q2

REPORT INFORMATION
  Report Type: 
  Country: None (occurrence: None)
  Receive Date: 20120529
  Receipt Date: 20120515
  Transmission Date: 20120825
  Serious: Yes (Hospitalization, Other)
  Sender: FDA-Public Use
  Company Number: US-SANOFI-AVENTIS-2012SA035424

PATIENT
  Age: 70 Year
  Sex: Female

DRUGS (6)
  1. AMIODARONE HCL [Concomitant]
  2. DIABETA [Suspect]
     Dates: start: 19990101, end: 20110101
  3. GLIPIZIDE [Concomitant]
  4. NOVOLIN N [Concomitant]
     Dosage: EVERY AM
  5. METFORMIN HCL [Concomitant]
  6. PLAVIX [Suspect]
     Route: 048
     Dates: start: 20060101

REACTIONS (4)
  - ARRHYTHMIA [None]
  - RHINORRHOEA [None]
  - NEPHROPATHY [None]
  - MYOCARDIAL INFARCTION [None]
